FAERS Safety Report 4505409-3 (Version None)
Quarter: 2004Q4

REPORT INFORMATION
  Report Type: 
  Country: None (occurrence: None)
  Receive Date: 20041118
  Receipt Date: 20041118
  Transmission Date: 20050328
  Serious: Yes (Life-Threatening, Hospitalization)
  Sender: FDA-Public Use
  Company Number: None

PATIENT
  Age: 36 Year
  Sex: Female
  Weight: 73 kg

DRUGS (8)
  1. ONTAK [Suspect]
     Indication: GRAFT VERSUS HOST DISEASE
     Dosage: 300MCG  Q DAY INTRAVENOU
     Route: 042
     Dates: start: 20041111, end: 20041114
  2. NEORAL [Concomitant]
  3. MGOXIDE [Concomitant]
  4. ACYCLOVIR [Concomitant]
  5. FOLIC ACID [Concomitant]
  6. ITRACONAZOLE [Concomitant]
  7. PROTONIX [Concomitant]
  8. LEXAPRO [Concomitant]

REACTIONS (4)
  - CEREBRAL HAEMORRHAGE [None]
  - HYPERTENSION [None]
  - INTRAVENTRICULAR HAEMORRHAGE [None]
  - SUBARACHNOID HAEMORRHAGE [None]
